FAERS Safety Report 20082187 (Version 1)
Quarter: 2021Q4

REPORT INFORMATION
  Report Type: Report from Study
  Country: MX (occurrence: MX)
  Receive Date: 20211117
  Receipt Date: 20211117
  Transmission Date: 20220303
  Serious: Yes (Other)
  Sender: FDA-Public Use
  Company Number: MX-NOVARTISPH-NVSC2021MX074302

PATIENT
  Age: 65 Year
  Sex: Female

DRUGS (1)
  1. TASIGNA [Suspect]
     Active Substance: NILOTINIB
     Indication: Chronic myeloid leukaemia
     Dosage: 400 MG, Q12H
     Route: 048
     Dates: start: 2015

REACTIONS (11)
  - Anaemia [Unknown]
  - Suicidal ideation [Unknown]
  - Full blood count decreased [Unknown]
  - Food aversion [Unknown]
  - Decreased appetite [Unknown]
  - Diarrhoea [Not Recovered/Not Resolved]
  - Fatigue [Unknown]
  - Dizziness [Unknown]
  - Malaise [Unknown]
  - Asthenia [Unknown]
  - Depression [Unknown]

NARRATIVE: CASE EVENT DATE: 20210319
